FAERS Safety Report 7101164-1 (Version None)
Quarter: 2010Q4

REPORT INFORMATION
  Report Type: 
  Country: None (occurrence: None)
  Receive Date: 20101108
  Receipt Date: 20101020
  Transmission Date: 20110411
  Serious: Yes (Life-Threatening, Hospitalization)
  Sender: FDA-Public Use
  Company Number: GAM-230-10-DE

PATIENT
  Age: 63 Year
  Sex: Male

DRUGS (7)
  1. OCTAGAM [Suspect]
     Indication: SECONDARY IMMUNODEFICIENCY
     Dosage: 10 G I.V.
     Route: 042
     Dates: start: 20100820, end: 20100820
  2. RINGERS SOLUTION (ELECTROLYTE SUBSTITUTION) [Concomitant]
  3. ASPIRIN [Concomitant]
  4. ENALAPRIL MALEATE [Concomitant]
  5. METOPROLOL [Concomitant]
  6. ZOCOR [Concomitant]
  7. THEOPHYLLINE [Concomitant]

REACTIONS (11)
  - CEREBRAL ISCHAEMIA [None]
  - CEREBROVASCULAR ACCIDENT [None]
  - DEPRESSED LEVEL OF CONSCIOUSNESS [None]
  - HEMIPARESIS [None]
  - HYPERTENSIVE CRISIS [None]
  - IIIRD NERVE PARESIS [None]
  - ISCHAEMIC CEREBRAL INFARCTION [None]
  - MENTAL DISORDER DUE TO A GENERAL MEDICAL CONDITION [None]
  - MYDRIASIS [None]
  - PARESIS [None]
  - PULMONARY EMBOLISM [None]
